FAERS Safety Report 9338319 (Version 2)
Quarter: 2013Q3

REPORT INFORMATION
  Report Type: Spontaneous
  Country: US (occurrence: US)
  Receive Date: 20130610
  Receipt Date: 20130830
  Transmission Date: 20140515
  Serious: Yes (Hospitalization)
  Sender: FDA-Public Use
  Company Number: US-PFIZER INC-2013171359

PATIENT
  Age: 70 Year
  Sex: Male
  Weight: 73.02 kg

DRUGS (3)
  1. VFEND [Suspect]
     Indication: MENINGITIS FUNGAL
     Dosage: 500 MG IN MORNING AND 450 MG IN EVENING
     Route: 048
     Dates: start: 201210
  2. CARDIZEM [Concomitant]
     Indication: HYPERTENSION
     Dosage: UNK
  3. BYSTOLIC [Concomitant]
     Indication: HYPERTENSION
     Dosage: UNK

REACTIONS (1)
  - Pneumonia [Unknown]
